FAERS Safety Report 5371986-6 (Version None)
Quarter: 2007Q2

REPORT INFORMATION
  Report Type: 
  Country: None (occurrence: None)
  Receive Date: 20070627
  Receipt Date: 20070621
  Transmission Date: 20071010
  Serious: Yes (Other)
  Sender: FDA-Public Use
  Company Number: US-ASTRAZENECA-2007UW14967

PATIENT
  Age: 81 Year
  Sex: Female

DRUGS (3)
  1. NOLVADEX [Suspect]
  2. ARIMIDEX [Concomitant]
     Indication: BREAST CANCER
     Dates: start: 20021101
  3. CALCIUM CHLORIDE [Concomitant]

REACTIONS (1)
  - TRANSIENT ISCHAEMIC ATTACK [None]
